FAERS Safety Report 7183521-0 (Version None)
Quarter: 2010Q4

REPORT INFORMATION
  Report Type: 
  Country: None (occurrence: None)
  Receive Date: 20101222
  Receipt Date: 20101215
  Transmission Date: 20110411
  Serious: Yes (Hospitalization)
  Sender: FDA-Public Use
  Company Number: US-SANOFI-AVENTIS-2010SA076496

PATIENT
  Age: 50 Year
  Sex: Female

DRUGS (3)
  1. TAXOTERE [Suspect]
     Indication: NON-SMALL CELL LUNG CANCER
     Route: 051
     Dates: start: 20100501, end: 20100501
  2. TAXOTERE [Suspect]
     Route: 051
     Dates: start: 20100101
  3. TAXOTERE [Suspect]
     Route: 051
     Dates: start: 20101204, end: 20101204

REACTIONS (4)
  - DYSPHAGIA [None]
  - ERYTHEMA [None]
  - LOCAL SWELLING [None]
  - LYMPHADENOPATHY [None]
